FAERS Safety Report 5328235-4 (Version None)
Quarter: 2007Q2

REPORT INFORMATION
  Report Type: 
  Country: None (occurrence: None)
  Receive Date: 20070515
  Receipt Date: 20070504
  Transmission Date: 20071010
  Serious: Yes (Other)
  Sender: FDA-Public Use
  Company Number: 2007BI006622

PATIENT
  Age: 64 Year
  Sex: Male
  Weight: 90.6287 kg

DRUGS (28)
  1. NATALIZUMAB [Suspect]
     Indication: MULTIPLE SCLEROSIS
     Dosage: 300 MG;QM;IV
     Route: 042
     Dates: start: 20070110, end: 20070220
  2. WELLBUTRIN XL [Concomitant]
  3. ARICEPT [Concomitant]
  4. NAMENDA [Concomitant]
  5. CRESTOR [Concomitant]
  6. SINGULAIR [Concomitant]
  7. ALLEGRA D 24 HOUR [Concomitant]
  8. PATANOL [Concomitant]
  9. CIALIS [Concomitant]
  10. CAVEJECT [Concomitant]
  11. ALLERGY SHOTS [Concomitant]
  12. AFRIN [Concomitant]
  13. ADVIL [Concomitant]
  14. MUCINEX [Concomitant]
  15. TYLENOL [Concomitant]
  16. POLICONSANOL [Concomitant]
  17. GUGGUL [Concomitant]
  18. FISH OIL [Concomitant]
  19. COENZYME Q10 [Concomitant]
  20. PROSATE SUPPLEMENT [Concomitant]
  21. ACETYLCYSTEINE [Concomitant]
  22. TURMERIC [Concomitant]
  23. QUERCITIN [Concomitant]
  24. BROMELAIN [Concomitant]
  25. CLARINEX [Concomitant]
  26. ADVAIR DISKUS 100/50 [Concomitant]
  27. ULTRAM [Concomitant]
  28. PREVACID [Concomitant]

REACTIONS (4)
  - CHILLS [None]
  - HODGKIN'S DISEASE [None]
  - LYMPHADENOPATHY [None]
  - PYREXIA [None]
